FAERS Safety Report 14450277 (Version 1)
Quarter: 2018Q1

REPORT INFORMATION
  Report Type: Spontaneous
  Country: GB (occurrence: GB)
  Receive Date: 20180129
  Receipt Date: 20180129
  Transmission Date: 20180509
  Serious: Yes (Other)
  Sender: FDA-Public Use
  Company Number: GB-AXELLIA-001328

PATIENT
  Age: 3 Week
  Sex: Male
  Weight: 3 kg

DRUGS (20)
  1. MEROPENEM. [Concomitant]
     Active Substance: MEROPENEM
  2. MORPHINE [Concomitant]
     Active Substance: MORPHINE
  3. HYDROCORTISONE. [Concomitant]
     Active Substance: HYDROCORTISONE
     Indication: HYPOTENSION
     Dosage: STOPPED.
  4. FLUCONAZOLE. [Concomitant]
     Active Substance: FLUCONAZOLE
  5. CUROSURF [Concomitant]
     Active Substance: PORACTANT ALFA
  6. MIDAZOLAM [Concomitant]
     Active Substance: MIDAZOLAM HYDROCHLORIDE
  7. CANRENOIC ACID [Concomitant]
     Active Substance: CANRENOIC ACID
  8. DOPAMINE [Concomitant]
     Active Substance: DOPAMINE\DOPAMINE HYDROCHLORIDE
  9. VANCOMYCIN [Suspect]
     Active Substance: VANCOMYCIN
     Indication: SEPSIS NEONATAL
     Route: 042
     Dates: start: 20171222, end: 20171228
  10. SILDENAFIL. [Concomitant]
     Active Substance: SILDENAFIL
  11. EPINEPHRINE. [Concomitant]
     Active Substance: EPINEPHRINE
  12. URSODEOXYCHOLATE SODIUM/URSODEOXYCHOLIC ACID [Concomitant]
  13. MILRINONE [Concomitant]
     Active Substance: MILRINONE
  14. TRANEXAMIC ACID. [Concomitant]
     Active Substance: TRANEXAMIC ACID
  15. GENTAMICIN. [Concomitant]
     Active Substance: GENTAMICIN
  16. RANITIDINE. [Concomitant]
     Active Substance: RANITIDINE
  17. BENZYLPENICILLIN [Concomitant]
     Active Substance: PENICILLIN G
  18. VECURONIUM [Concomitant]
     Active Substance: VECURONIUM BROMIDE
  19. DINOPROSTONE. [Concomitant]
     Active Substance: DINOPROSTONE
  20. FUROSEMIDE. [Concomitant]
     Active Substance: FUROSEMIDE

REACTIONS (2)
  - Dermatitis [Recovered/Resolved]
  - Rash generalised [Recovered/Resolved]

NARRATIVE: CASE EVENT DATE: 20171227
